FAERS Safety Report 22262056 (Version 1)
Quarter: 2023Q2

REPORT INFORMATION
  Report Type: Spontaneous
  Country: CA (occurrence: CA)
  Receive Date: 20230428
  Receipt Date: 20230428
  Transmission Date: 20230721
  Serious: Yes (Hospitalization, Other)
  Sender: FDA-Public Use
  Company Number: CA-BAXTER-2023BAX019851

PATIENT
  Age: 67 Year
  Sex: Female

DRUGS (23)
  1. ONDANSETRON [Suspect]
     Active Substance: ONDANSETRON
     Indication: Product used for unknown indication
     Route: 065
  2. DEXAMETHASONE [Suspect]
     Active Substance: DEXAMETHASONE
     Indication: Product used for unknown indication
     Dosage: AT AN UNSPECIFIED DOSE AND FREQUENCY, DOSAGE FORM: NOT SPECIFIED
     Route: 065
  3. GLICLAZIDE [Suspect]
     Active Substance: GLICLAZIDE
     Indication: Product used for unknown indication
     Route: 065
  4. IXAZOMIB [Suspect]
     Active Substance: IXAZOMIB
     Indication: Product used for unknown indication
     Route: 065
  5. PIOGLITAZONE HYDROCHLORIDE [Suspect]
     Active Substance: PIOGLITAZONE HYDROCHLORIDE
     Indication: Product used for unknown indication
     Route: 065
  6. VAXZEVRIA [Suspect]
     Active Substance: AZD-1222
     Indication: Product used for unknown indication
     Dosage: AT AN UNSPECIFIED DOSE AND FREQUENCY, DOSAGE FORM: SOLUTION INTRAMUSCULAR, VIAL CONTAINS 10 DOSES OF
     Route: 030
  7. ASPIRIN [Concomitant]
     Active Substance: ASPIRIN
     Dosage: AT AN UNSPECIFIED DOSE AND FREQUENCY, DOSAGE FORM: NOT SPECIFIED
     Route: 065
  8. ACYCLOVIR [Concomitant]
     Active Substance: ACYCLOVIR
     Dosage: AT AN UNSPECIFIED DOSE AND FREQUENCY, DOSAGE FORM: NOT SPECIFIED
     Route: 065
  9. AMLODIPINE BESYLATE [Concomitant]
     Active Substance: AMLODIPINE BESYLATE
     Route: 065
  10. ATENOLOL [Concomitant]
     Active Substance: ATENOLOL
     Route: 065
  11. BACLOFEN [Concomitant]
     Active Substance: BACLOFEN
     Dosage: AT AN UNSPECIFIED DOSE AND FREQUENCY, DOSAGE FORM: NOT SPECIFIED
     Route: 065
  12. DIETARY SUPPLEMENT [Concomitant]
     Active Substance: DIETARY SUPPLEMENT
     Route: 065
  13. CYCLOPHOSPHAMIDE [Concomitant]
     Active Substance: CYCLOPHOSPHAMIDE
     Dosage: AT AN UNSPECIFIED DOSE AND FREQUENCY, DOSAGE FORM: NOT SPECIFIED
     Route: 065
  14. EPOETIN ALFA [Concomitant]
     Active Substance: ERYTHROPOIETIN
     Route: 065
  15. FERROUS FUMARATE [Suspect]
     Active Substance: FERROUS FUMARATE
     Dosage: AT AN UNSPECIFIED DOSE AND FREQUENCY, DOSAGE FORM: NOT SPECIFIED
     Route: 065
  16. NITROGLYCERIN [Suspect]
     Active Substance: NITROGLYCERIN
     Dosage: AT AN UNSPECIFIED DOSE AND FREQUENCY, DOSAGE FORM: NOT SPECIFIED
     Route: 065
  17. PANTOPRAZOLE SODIUM [Concomitant]
     Active Substance: PANTOPRAZOLE SODIUM
     Route: 065
  18. PREDNISONE [Concomitant]
     Active Substance: PREDNISONE
     Dosage: AT AN UNSPECIFIED DOSE AND FREQUENCY, DOSAGE FORM: NOT SPECIFIED
     Route: 065
  19. QUININE [Concomitant]
     Active Substance: QUININE
     Dosage: AT AN UNSPECIFIED DOSE AND FREQUENCY, DOSAGE FORM: NOT SPECIFIED
     Route: 065
  20. REVLIMID [Concomitant]
     Active Substance: LENALIDOMIDE
     Route: 065
  21. ROSUVASTATIN CALCIUM [Concomitant]
     Active Substance: ROSUVASTATIN CALCIUM
     Route: 065
  22. TERAZOSIN HYDROCHLORIDE [Concomitant]
     Active Substance: TERAZOSIN HYDROCHLORIDE
     Route: 065
  23. LINAGLIPTIN [Concomitant]
     Active Substance: LINAGLIPTIN
     Route: 065

REACTIONS (5)
  - Abdominal pain upper [Recovered/Resolved]
  - Cardiac failure [Recovered/Resolved]
  - Product use issue [Recovered/Resolved]
  - Dyspnoea [Recovered/Resolved]
  - Constipation [Recovered/Resolved]
